FAERS Safety Report 10059751 (Version 1)
Quarter: 2014Q2

REPORT INFORMATION
  Report Type: Spontaneous
  Country: US (occurrence: None)
  Receive Date: 20140402
  Receipt Date: 20140402
  Transmission Date: 20141212
  Serious: Yes (Other)
  Sender: FDA-Public Use
  Company Number: AUR-APL-2014-03674

PATIENT
  Age: 18 Year
  Sex: Female

DRUGS (2)
  1. MINOCYCLINE (MINOCYCLINE) [Suspect]
     Indication: ACNE
  2. RANITIDINE HYDROCHLORIDE (RANITIDINE HYDROCHLORIDE) [Concomitant]

REACTIONS (5)
  - Synovitis [None]
  - Skin lesion [None]
  - Ulcer [None]
  - Livedo reticularis [None]
  - Polyarteritis nodosa [None]
